FAERS Safety Report 16981207 (Version 2)
Quarter: 2020Q2

REPORT INFORMATION
  Report Type: Spontaneous
  Country: US (occurrence: US)
  Receive Date: 20191031
  Receipt Date: 20200505
  Transmission Date: 20200713
  Serious: No
  Sender: FDA-Public Use
  Company Number: US-ACTELION-A-NJ2019-197590

PATIENT
  Sex: Female

DRUGS (1)
  1. OPSUMIT [Suspect]
     Active Substance: MACITENTAN
     Indication: PULMONARY ARTERIAL HYPERTENSION
     Dosage: UNK
     Route: 048
     Dates: start: 20151201

REACTIONS (1)
  - Hypoacusis [Unknown]
